FAERS Safety Report 17445805 (Version 1)
Quarter: 2020Q1

REPORT INFORMATION
  Report Type: Spontaneous
  Country: FR (occurrence: FR)
  Receive Date: 20200221
  Receipt Date: 20200221
  Transmission Date: 20200409
  Serious: Yes (Disabling)
  Sender: FDA-Public Use
  Company Number: FR-MYLANLABS-2020M1018436

PATIENT
  Age: 13 Year
  Sex: Female
  Weight: 33 kg

DRUGS (5)
  1. VINCRISTINE HOSPIRA [Suspect]
     Active Substance: VINCRISTINE
     Indication: DIFFUSE LARGE B-CELL LYMPHOMA
     Dosage: 2 MILLIGRAM/SQ. METER, CYCLE
     Route: 042
     Dates: start: 20191103, end: 20191103
  2. ENDOXAN                            /00021101/ [Suspect]
     Active Substance: CYCLOPHOSPHAMIDE
     Indication: DIFFUSE LARGE B-CELL LYMPHOMA
     Dosage: 250 MILLIGRAM/SQ. METER, QD
     Route: 042
     Dates: start: 20110504, end: 20191106
  3. MABTHERA [Suspect]
     Active Substance: RITUXIMAB
     Indication: DIFFUSE LARGE B-CELL LYMPHOMA
     Dosage: 375 MILLIGRAM/SQ. METER, CYCLE
     Route: 042
     Dates: start: 20191031, end: 20191102
  4. METHOTREXATE MYLAN [Suspect]
     Active Substance: METHOTREXATE SODIUM
     Indication: DIFFUSE LARGE B-CELL LYMPHOMA
     Dosage: 3000 MILLIGRAM/SQ. METER, CYCLE
     Route: 042
     Dates: start: 20191103, end: 20191103
  5. DOXORUBICINE ACCORD [Suspect]
     Active Substance: DOXORUBICIN
     Indication: DIFFUSE LARGE B-CELL LYMPHOMA
     Dosage: 60 MILLIGRAM/SQ. METER, QD
     Route: 042
     Dates: start: 20191104, end: 20191104

REACTIONS (1)
  - Tenosynovitis [Recovered/Resolved with Sequelae]

NARRATIVE: CASE EVENT DATE: 20191115
